FAERS Safety Report 4329981-1 (Version None)
Quarter: 2004Q2

REPORT INFORMATION
  Report Type: 
  Country: None (occurrence: None)
  Receive Date: 20040401
  Receipt Date: 20040322
  Transmission Date: 20050107
  Serious: Yes (Life-Threatening, Hospitalization)
  Sender: FDA-Public Use
  Company Number: US-MERCK-0403USA01985

PATIENT
  Sex: Female

DRUGS (3)
  1. [THERAPY UNSPECIFIED] [Concomitant]
     Route: 065
  2. VIOXX [Suspect]
     Indication: PAIN
     Route: 048
  3. VIOXX [Suspect]
     Route: 048
     Dates: start: 20040101

REACTIONS (1)
  - PULMONARY EMBOLISM [None]
